FAERS Safety Report 12288521 (Version 1)
Quarter: 2016Q2

REPORT INFORMATION
  Report Type: Spontaneous
  Country: US (occurrence: US)
  Receive Date: 20160420
  Receipt Date: 20160420
  Transmission Date: 20160815
  Serious: Yes (Other)
  Sender: FDA-Public Use
  Company Number: GXBR2016US001326

PATIENT
  Sex: Female

DRUGS (1)
  1. GLATOPA [Suspect]
     Active Substance: GLATIRAMER ACETATE
     Indication: PRODUCT USED FOR UNKNOWN INDICATION
     Dosage: 20 MG/ML, UNK
     Route: 065

REACTIONS (7)
  - Loss of consciousness [Unknown]
  - Abdominal pain upper [Unknown]
  - Flushing [Unknown]
  - Dizziness [Unknown]
  - Dysgeusia [Unknown]
  - Memory impairment [Unknown]
  - Presyncope [Unknown]
